FAERS Safety Report 7065502-0 (Version None)
Quarter: 2010Q4

REPORT INFORMATION
  Report Type: 
  Country: None (occurrence: None)
  Receive Date: 20101027
  Receipt Date: 20101015
  Transmission Date: 20110411
  Serious: Yes (Other)
  Sender: FDA-Public Use
  Company Number: US-PFIZER INC-2010132434

PATIENT
  Sex: Male

DRUGS (6)
  1. LYRICA [Suspect]
     Indication: FIBROMYALGIA
     Dosage: 150 MG, 2X/DAY
  2. OXYCONTIN [Concomitant]
  3. FENTANYL [Concomitant]
  4. METHADONE [Concomitant]
  5. ANDROGEL [Concomitant]
  6. MEGACE [Concomitant]
     Indication: DECREASED APPETITE

REACTIONS (5)
  - AMNESIA [None]
  - CONFUSIONAL STATE [None]
  - DISSOCIATIVE DISORDER [None]
  - DRUG INEFFECTIVE [None]
  - FEELING ABNORMAL [None]
